FAERS Safety Report 8143668-9 (Version None)
Quarter: 2012Q1

REPORT INFORMATION
  Report Type: 
  Country: None (occurrence: None)
  Receive Date: 20120217
  Receipt Date: 20120210
  Transmission Date: 20120608
  Serious: Yes (Other)
  Sender: FDA-Public Use
  Company Number: US-ABBOTT-12P-163-0900721-00

PATIENT
  Age: 55 Year
  Sex: Female

DRUGS (11)
  1. STEROID [Concomitant]
     Indication: PRODUCT USED FOR UNKNOWN INDICATION
     Dosage: HAS MONTHLY SHOT IN THE BACK
  2. METHOTREXATE [Concomitant]
     Indication: PRODUCT USED FOR UNKNOWN INDICATION
     Dosage: WEEKLY DOSE: 8 PILLS
  3. PRAVASTATIN [Concomitant]
     Indication: BLOOD CHOLESTEROL INCREASED
  4. CYMBALTA [Concomitant]
     Indication: DEPRESSION
     Dosage: DAILY DOSE: 50MG
  5. MORPHINE [Concomitant]
     Indication: BACK PAIN
     Dosage: PATCH WEEKLY
  6. GABAPENTIN [Concomitant]
     Indication: FIBROMYALGIA
  7. FOLIC ACID [Concomitant]
     Indication: PRODUCT USED FOR UNKNOWN INDICATION
  8. HUMIRA [Suspect]
     Indication: RHEUMATOID ARTHRITIS
     Dates: end: 20111201
  9. DIVAN [Concomitant]
     Indication: HYPERTENSION
  10. LEVOTHYROXINE SODIUM [Concomitant]
     Indication: HYPOTHYROIDISM
  11. CYMBALTA [Concomitant]
     Dosage: DAILY DOSE: 100MG

REACTIONS (9)
  - HERNIA [None]
  - DRUG INEFFECTIVE [None]
  - GASTROOESOPHAGEAL REFLUX DISEASE [None]
  - DEPRESSION [None]
  - INSOMNIA [None]
  - MENSTRUAL DISORDER [None]
  - VISUAL ACUITY REDUCED [None]
  - PAIN [None]
  - NECK PAIN [None]
